FAERS Safety Report 16034856 (Version 1)
Quarter: 2019Q1

REPORT INFORMATION
  Report Type: Spontaneous
  Country: US (occurrence: US)
  Receive Date: 20190205
  Receipt Date: 20190205
  Transmission Date: 20190418
  Serious: No
  Sender: FDA-Public Use
  Company Number: None

PATIENT
  Age: 77 Year
  Sex: Female

DRUGS (1)
  1. RYDAPT [Suspect]
     Active Substance: MIDOSTAURIN
     Route: 048
     Dates: start: 20190105

REACTIONS (6)
  - Head discomfort [None]
  - Chest pain [None]
  - Pulmonary congestion [None]
  - Nausea [None]
  - Musculoskeletal discomfort [None]
  - Nasal congestion [None]

NARRATIVE: CASE EVENT DATE: 20190129
